FAERS Safety Report 4564377-9 (Version None)
Quarter: 2005Q1

REPORT INFORMATION
  Report Type: 
  Country: None (occurrence: None)
  Receive Date: 20050128
  Receipt Date: 20050122
  Transmission Date: 20050727
  Serious: Yes (Hospitalization)
  Sender: FDA-Public Use
  Company Number: GB-GLAXOSMITHKLINE-B0365364A

PATIENT
  Sex: Male

DRUGS (5)
  1. PROCYCLIDINE HYDROCHLORIDE 2MG TAB [Suspect]
     Dosage: 5MG VARIABLE DOSE
     Route: 065
  2. TRIFLUOPERAZINE HCL [Suspect]
     Indication: BIPOLAR DISORDER
     Route: 048
  3. DOTHIEPIN HYDROCHLORIDE [Suspect]
     Indication: BIPOLAR DISORDER
     Route: 048
  4. MORPHINE [Suspect]
     Dosage: 30MG TWICE PER DAY
     Route: 065
     Dates: end: 20041206
  5. CARBAMAZEPINE [Suspect]
     Dosage: 200MG TWICE PER DAY
     Route: 065

REACTIONS (2)
  - SEDATION [None]
  - SOMNOLENCE [None]
